FAERS Safety Report 7469455-2 (Version None)
Quarter: 2011Q2

REPORT INFORMATION
  Report Type: 
  Country: None (occurrence: None)
  Receive Date: 20110510
  Receipt Date: 20110421
  Transmission Date: 20111010
  Serious: No
  Sender: FDA-Public Use
  Company Number: US-B.I. PHARMACEUTICALS,INC./RIDGEFIELD-2011-BP-06179BP

PATIENT
  Sex: Male

DRUGS (13)
  1. RYTHMOL [Concomitant]
     Indication: ATRIAL FIBRILLATION
     Dosage: 850 MG
     Dates: start: 20050101
  2. DESOXIMETASONE [Concomitant]
     Indication: DERMATITIS
  3. PRADAXA [Suspect]
     Indication: ATRIAL FIBRILLATION
     Dosage: 300 MG
     Route: 048
     Dates: start: 20110302, end: 20110304
  4. AMLODIPINE BESYLATE [Concomitant]
     Indication: HYPERTENSION
     Dosage: 5 MG
     Dates: start: 20080101
  5. SYSTANE LUBRICANT EYE DROPS [Concomitant]
     Indication: DRY EYE
  6. LIPITOR [Concomitant]
     Indication: BLOOD CHOLESTEROL
     Dosage: 20 MG
     Dates: start: 20040101
  7. METOPROLOL SUCCINATE EXTENDED RELEASE [Concomitant]
     Dosage: 100 MG
     Dates: start: 20050101
  8. ALCORTIN A [Concomitant]
     Indication: RASH
  9. TYLENOL (CAPLET) [Concomitant]
     Indication: RASH
  10. FLUTICASONE PROPIONATE [Concomitant]
     Indication: NASAL POLYPS
     Dosage: 100 MCG
  11. LIPITOR [Concomitant]
     Dosage: 10 MG
     Dates: start: 20110111
  12. MULTIPLE VITAMIN [Concomitant]
     Indication: RASH
  13. AMLACTIN [Concomitant]
     Indication: DRY EYE

REACTIONS (8)
  - NAUSEA [None]
  - SYNOVIAL CYST [None]
  - DISCOMFORT [None]
  - MYALGIA [None]
  - DIARRHOEA [None]
  - ABDOMINAL DISCOMFORT [None]
  - ARTHRALGIA [None]
  - ARTHRITIS [None]
